FAERS Safety Report 13446119 (Version 2)
Quarter: 2017Q2

REPORT INFORMATION
  Report Type: Spontaneous
  Country: US (occurrence: US)
  Receive Date: 20170417
  Receipt Date: 20170425
  Transmission Date: 20170830
  Serious: Yes (Hospitalization, Other)
  Sender: FDA-Public Use
  Company Number: US-AUROBINDO-AUR-APL-2017-32579

PATIENT
  Age: 20 Year
  Sex: Male

DRUGS (8)
  1. LITHIUM. [Suspect]
     Active Substance: LITHIUM
     Dosage: UNK, OVER A 2-WEEK
     Route: 065
  2. LITHIUM. [Suspect]
     Active Substance: LITHIUM
     Dosage: 1500 MG, DAILY
     Route: 065
  3. HALOPERIDOL. [Suspect]
     Active Substance: HALOPERIDOL
     Dosage: 10 MG, DAILY
     Route: 065
  4. OLANZAPINE 20MG [Suspect]
     Active Substance: OLANZAPINE
     Indication: PSYCHOTIC DISORDER
     Dosage: 20 MG, DAILY
     Route: 065
  5. LORAZEPAM. [Suspect]
     Active Substance: LORAZEPAM
     Indication: PSYCHOTIC DISORDER
     Dosage: 2 MG, UNK
     Route: 065
  6. LITHIUM. [Suspect]
     Active Substance: LITHIUM
     Indication: PSYCHOTIC DISORDER
     Dosage: 900 MG, DAILY
     Route: 065
  7. HALOPERIDOL. [Suspect]
     Active Substance: HALOPERIDOL
     Indication: PSYCHOTIC DISORDER
     Dosage: 5 MG, DAILY
     Route: 065
  8. RISPERIDONE. [Suspect]
     Active Substance: RISPERIDONE
     Indication: PSYCHOTIC DISORDER
     Dosage: 6 MG, DAILY
     Route: 065

REACTIONS (11)
  - Tremor [Recovered/Resolved]
  - Cognitive disorder [Recovered/Resolved]
  - Hallucination, olfactory [Recovered/Resolved]
  - Somnolence [Recovered/Resolved]
  - Abdominal discomfort [Recovered/Resolved]
  - Acne [Recovered/Resolved]
  - Fatigue [Recovered/Resolved]
  - Hallucination, auditory [Recovered/Resolved]
  - Seizure [Recovered/Resolved]
  - Hallucination [Recovered/Resolved]
  - Headache [Recovered/Resolved]
